FAERS Safety Report 8834665 (Version 1)
Quarter: 2012Q4

REPORT INFORMATION
  Report Type: Spontaneous
  Country: US (occurrence: None)
  Receive Date: 20120920
  Receipt Date: 20120920
  Transmission Date: 20130627
  Serious: Yes (Hospitalization)
  Sender: FDA-Public Use
  Company Number: 2012PROUSA01975

PATIENT
  Age: 80 Year
  Sex: Male

DRUGS (9)
  1. PROVENGE (SIPULEUCEL-T) SUSPENSION, 250ML [Suspect]
     Indication: PROSTATE CANCER METASTATIC
     Dosage: 250 ml, single, Intravenous
     Route: 042
     Dates: start: 20120830, end: 20120830
  2. NORVASC (AMLODIPINE BESILATE) [Concomitant]
  3. ASA (ACETYLSALICYLIC ACID) [Concomitant]
  4. QUINAPRIL (QUINAPRIL HYDROCHLORIDE) [Concomitant]
  5. METFORMIN (METFORMIN HYDROCHLORIDE) [Concomitant]
  6. GEMFIBROZIL [Concomitant]
  7. LUPRON (LEUPRORELIN ACETATE) [Concomitant]
  8. LIPITOR (ATORVASTATIN CALCIUM) [Concomitant]
  9. METOPROLOL (METOPROLOL TARTRATE) [Concomitant]

REACTIONS (3)
  - Acute myocardial infarction [None]
  - Urinary tract infection [None]
  - Coronary artery stenosis [None]
